FAERS Safety Report 4622930-8 (Version None)
Quarter: 2005Q1

REPORT INFORMATION
  Report Type: 
  Country: None (occurrence: None)
  Receive Date: 20050329
  Receipt Date: 20031023
  Transmission Date: 20050727
  Serious: No
  Sender: FDA-Public Use
  Company Number: 6499

PATIENT
  Age: 23 Year
  Sex: Male

DRUGS (4)
  1. CISPLATIN [Suspect]
     Indication: TESTICULAR NEOPLASM
     Dosage: 20 MG PER_CYCLE IV
     Route: 042
  2. ETOPOSIDE [Suspect]
     Indication: TESTICULAR NEOPLASM
     Dosage: 100 MG/M2 PER_CYCLE IV
     Route: 042
  3. BLEOMYCIN [Suspect]
     Indication: TESTICULAR NEOPLASM
     Dosage: 15 MG/M2 PER_CYCLE IV
     Route: 042
  4. VINBLASTINE SULFATE [Suspect]
     Indication: TESTICULAR NEOPLASM
     Dosage: 0.15 MG/KG PER_CYCLE IV
     Route: 042

REACTIONS (2)
  - GRAND MAL CONVULSION [None]
  - SIMPLE PARTIAL SEIZURES [None]
